FAERS Safety Report 10089300 (Version 8)
Quarter: 2016Q1

REPORT INFORMATION
  Report Type: Spontaneous
  Country: US (occurrence: US)
  Receive Date: 20140421
  Receipt Date: 20160226
  Transmission Date: 20160525
  Serious: Yes (Hospitalization, Disabling, Other)
  Sender: FDA-Public Use
  Company Number: US-009507513-1404USA006206

PATIENT
  Sex: Female
  Weight: 82.99 kg

DRUGS (17)
  1. PRILOSEC [Concomitant]
     Active Substance: OMEPRAZOLE MAGNESIUM
     Indication: GASTROOESOPHAGEAL REFLUX DISEASE
     Dosage: UNK, UNKNOWN
     Route: 065
     Dates: start: 1993
  2. DOXEPIN HYDROCHLORIDE. [Concomitant]
     Active Substance: DOXEPIN HYDROCHLORIDE
     Indication: DEPRESSION
     Dosage: UNK, UNKNOWN
     Route: 065
     Dates: start: 199908
  3. RESTASIS [Concomitant]
     Active Substance: CYCLOSPORINE
     Indication: DRY EYE
     Dosage: UNK, UNKNOWN
     Route: 065
     Dates: start: 1990
  4. FOSAMAX [Suspect]
     Active Substance: ALENDRONATE SODIUM
     Indication: OSTEOPOROSIS
     Dosage: 70 MG, QW
     Route: 048
     Dates: start: 20030702, end: 20071226
  5. CALCIUM (UNSPECIFIED) [Concomitant]
     Active Substance: CALCIUM
     Indication: PRODUCT USED FOR UNKNOWN INDICATION
     Dosage: 1200 MG, QD
     Route: 065
     Dates: start: 1996
  6. DOXEPIN HYDROCHLORIDE. [Concomitant]
     Active Substance: DOXEPIN HYDROCHLORIDE
     Indication: ANXIETY
  7. ALENDRONATE SODIUM. [Suspect]
     Active Substance: ALENDRONATE SODIUM
     Indication: OSTEOPOROSIS
     Dosage: 70 MG, QW
     Route: 048
     Dates: start: 20080325, end: 20100331
  8. OMEGA-3 MARINE TRIGLYCERIDES [Concomitant]
     Active Substance: FISH OIL
     Indication: PRODUCT USED FOR UNKNOWN INDICATION
     Dosage: 1000 MG, QD
     Route: 065
     Dates: start: 1996
  9. CYANOCOBALAMIN. [Concomitant]
     Active Substance: CYANOCOBALAMIN
     Indication: PRODUCT USED FOR UNKNOWN INDICATION
     Dosage: 1500 IU, QD
     Route: 065
     Dates: start: 1996
  10. CELEBREX [Concomitant]
     Active Substance: CELECOXIB
     Indication: PAIN
     Dosage: UNK, UNKNOWN
     Route: 048
     Dates: start: 1999
  11. VITAMINS (UNSPECIFIED) [Concomitant]
     Active Substance: VITAMINS
     Indication: PRODUCT USED FOR UNKNOWN INDICATION
     Dosage: UNK, QD
     Route: 065
     Dates: start: 1996
  12. FOLIC ACID. [Concomitant]
     Active Substance: FOLIC ACID
     Indication: PRODUCT USED FOR UNKNOWN INDICATION
     Dosage: 1000 MICROGRAM, UNKNOWN
     Route: 065
     Dates: start: 1996
  13. IRON (UNSPECIFIED) [Concomitant]
     Active Substance: IRON
     Indication: PRODUCT USED FOR UNKNOWN INDICATION
     Dosage: 28 MG, QD
     Route: 065
     Dates: start: 1996
  14. DOXEPIN HYDROCHLORIDE. [Concomitant]
     Active Substance: DOXEPIN HYDROCHLORIDE
     Indication: SLEEP DISORDER
  15. XALATAN [Concomitant]
     Active Substance: LATANOPROST
     Indication: GLAUCOMA
     Dosage: UNK, UNKNOWN
     Route: 065
     Dates: start: 2000
  16. PILOCARPINE. [Concomitant]
     Active Substance: PILOCARPINE
     Indication: SJOGREN^S SYNDROME
     Dosage: UNK, UNKNOWN
     Route: 065
     Dates: start: 2000, end: 2013
  17. CHOLECALCIFEROL [Concomitant]
     Active Substance: CHOLECALCIFEROL
     Indication: PRODUCT USED FOR UNKNOWN INDICATION
     Dosage: 3000 IU, QD
     Route: 048
     Dates: start: 1996

REACTIONS (29)
  - Spinal corpectomy [Unknown]
  - Oral surgery [Unknown]
  - Irritable bowel syndrome [Unknown]
  - Tooth loss [Unknown]
  - Lumbar vertebral fracture [Unknown]
  - Benign neoplasm [Unknown]
  - Asthma [Unknown]
  - Vertebroplasty [Unknown]
  - Spinal fusion surgery [Unknown]
  - Calcium deficiency [Unknown]
  - Ulna fracture [Unknown]
  - Eye disorder [Unknown]
  - Bursa removal [Unknown]
  - Spinal fusion surgery [Unknown]
  - Dental implantation [Unknown]
  - Tooth extraction [Unknown]
  - Fibromyalgia [Unknown]
  - Bursitis [Unknown]
  - Intramedullary rod insertion [Unknown]
  - Muscle spasms [Unknown]
  - Intramedullary rod insertion [Unknown]
  - Spinal fusion surgery [Unknown]
  - Oral surgery [Unknown]
  - Spinal fusion surgery [Unknown]
  - Spinal laminectomy [Unknown]
  - Femur fracture [Unknown]
  - Oral surgery [Unknown]
  - Dental implantation [Unknown]
  - Nasal congestion [Unknown]

NARRATIVE: CASE EVENT DATE: 20031125
